FAERS Safety Report 9169293 (Version 2)
Quarter: 2013Q3

REPORT INFORMATION
  Report Type: Spontaneous
  Country: US (occurrence: US)
  Receive Date: 20130318
  Receipt Date: 20130926
  Transmission Date: 20140515
  Serious: Yes (Hospitalization, Disabling)
  Sender: FDA-Public Use
  Company Number: US-BAYER-2013-031452

PATIENT
  Age: 53 Year
  Sex: Female

DRUGS (6)
  1. GIANVI [Suspect]
     Indication: HOT FLUSH
     Dosage: UNK
     Dates: start: 20110329, end: 20110903
  2. CYCLOBENZAPRINE [Concomitant]
     Dosage: 5 MG, TID
     Route: 048
  3. IBUPROFEN [IBUPROFEN] [Concomitant]
     Dosage: 600 MG, TID
     Route: 048
  4. OXYCODONE [Concomitant]
     Dosage: 5 MG, 2 TABLETS EVERY 6 HR AS NEEDED
     Route: 048
  5. OXYCONTIN [Concomitant]
     Indication: PAIN MANAGEMENT
  6. MOTRIN [Concomitant]

REACTIONS (11)
  - Pulmonary embolism [None]
  - Hypertension [None]
  - Off label use [None]
  - Chest discomfort [None]
  - Dyspnoea exertional [None]
  - Back pain [None]
  - Injury [None]
  - Emotional distress [None]
  - Depression [None]
  - Fear of death [None]
  - Nervousness [None]
